FAERS Safety Report 10515719 (Version 1)
Quarter: 2014Q4

REPORT INFORMATION
  Report Type: Spontaneous
  Country: US (occurrence: US)
  Receive Date: 20141014
  Receipt Date: 20141014
  Transmission Date: 20150528
  Serious: Yes (Hospitalization)
  Sender: FDA-Public Use
  Company Number: US-BAYER-2014-149303

PATIENT
  Age: 19 Year
  Sex: Female

DRUGS (18)
  1. NAPROXEN. [Concomitant]
     Active Substance: NAPROXEN
     Dosage: 500 MG, BID, ONE TABLET DAILY WITH FOOD
     Route: 048
     Dates: start: 20060629
  2. CODEINE [Concomitant]
     Active Substance: CODEINE
  3. XOPENEX [Concomitant]
     Active Substance: LEVALBUTEROL HYDROCHLORIDE
  4. FLUCONAZOLE. [Concomitant]
     Active Substance: FLUCONAZOLE
     Dosage: 150 MG,ONE TABLET NOW REPEAT IN 3 DAYS
     Route: 048
     Dates: start: 20060705
  5. ZITHROMAX [Concomitant]
     Active Substance: AZITHROMYCIN DIHYDRATE
     Indication: DYSPNOEA
  6. CIPROFLOXACIN. [Concomitant]
     Active Substance: CIPROFLOXACIN
     Dosage: 500 MG,ONE TABLET EVERY 12 HOURS
     Route: 048
     Dates: start: 20060705
  7. PHENERGAN [Concomitant]
     Active Substance: PROMETHAZINE HYDROCHLORIDE
  8. NAPROSYN [Concomitant]
     Active Substance: NAPROXEN
     Indication: PERIPHERAL SWELLING
  9. YASMIN [Suspect]
     Active Substance: DROSPIRENONE\ETHINYL ESTRADIOL
  10. IBUPROFEN. [Concomitant]
     Active Substance: IBUPROFEN
     Indication: PAIN
     Dosage: 600 MG, PRN, ONE TABLE EVERY 8 HOURS
     Route: 048
     Dates: start: 20060618
  11. AZITHROMYCIN [Concomitant]
     Active Substance: AZITHROMYCIN ANHYDROUS
     Dosage: 250 MG, PACK PRN
     Dates: start: 20060808
  12. ZITHROMAX [Concomitant]
     Active Substance: AZITHROMYCIN DIHYDRATE
     Indication: COUGH
  13. ASPIRIN. [Concomitant]
     Active Substance: ASPIRIN
     Indication: DEEP VEIN THROMBOSIS
  14. ORPHENADRINE [Concomitant]
     Active Substance: ORPHENADRINE
     Dosage: 100 MG, ONE TABLET BID
     Route: 048
     Dates: start: 20060629
  15. ASPIRIN. [Concomitant]
     Active Substance: ASPIRIN
     Indication: PULMONARY EMBOLISM
  16. ALBUTEROL. [Concomitant]
     Active Substance: ALBUTEROL
     Indication: ASTHMA
  17. NAPROXEN. [Concomitant]
     Active Substance: NAPROXEN
     Dosage: 375 MG ONE TABLET
     Route: 048
     Dates: start: 20060716
  18. PROMETHAZINE - CODEINE [CODEINE PHOSPHATE,PROMETHAZINE HYDROCHLORI [Concomitant]
     Dosage: TEASPOONFUL EVERY 4 TO 6 HOURS
     Route: 048
     Dates: start: 20060808

REACTIONS (2)
  - Pulmonary embolism [None]
  - Deep vein thrombosis [None]

NARRATIVE: CASE EVENT DATE: 20060618
